FAERS Safety Report 4273678-3 (Version None)
Quarter: 2004Q1

REPORT INFORMATION
  Report Type: 
  Country: None (occurrence: None)
  Receive Date: 20040116
  Receipt Date: 20040116
  Transmission Date: 20041129
  Serious: Yes (Hospitalization)
  Sender: FDA-Public Use
  Company Number: None

PATIENT
  Age: 48 Year
  Sex: Male
  Weight: 77.1115 kg

DRUGS (1)
  1. VENLAFAXINE HCL [Suspect]
     Indication: DEPRESSION
     Dosage: 300 MG PO QAM
     Route: 048

REACTIONS (5)
  - ASTHENIA [None]
  - CONFUSIONAL STATE [None]
  - MENTAL DISORDER [None]
  - MUSCULAR WEAKNESS [None]
  - SOMNOLENCE [None]
